FAERS Safety Report 9013738 (Version 1)
Quarter: 2013Q1

REPORT INFORMATION
  Report Type: Spontaneous
  Country: FR (occurrence: FR)
  Receive Date: 20130115
  Receipt Date: 20130115
  Transmission Date: 20140127
  Serious: Yes (Other)
  Sender: FDA-Public Use
  Company Number: PHHY2013FR002622

PATIENT
  Age: 60 Year
  Sex: Male

DRUGS (6)
  1. TASIGNA [Suspect]
     Indication: CHRONIC MYELOID LEUKAEMIA
     Dosage: 800 MG, QD
     Route: 048
     Dates: start: 20120523, end: 20120710
  2. TASIGNA [Suspect]
     Dosage: 800 MG, QD
     Route: 048
     Dates: start: 201207, end: 201208
  3. TASIGNA [Suspect]
     Dosage: 400 MG, QD
     Route: 048
     Dates: start: 20120905, end: 201210
  4. TASIGNA [Suspect]
     Dosage: 200 MG, QD
     Route: 048
     Dates: start: 201210, end: 20121106
  5. PARACETAMOL [Concomitant]
  6. HOMEOPATHIC PREPARATION [Concomitant]

REACTIONS (2)
  - VIIth nerve paralysis [Recovering/Resolving]
  - Oropharyngeal pain [Unknown]
